FAERS Safety Report 21314819 (Version 1)
Quarter: 2022Q3

REPORT INFORMATION
  Report Type: Spontaneous
  Country: US (occurrence: None)
  Receive Date: 20220909
  Receipt Date: 20220909
  Transmission Date: 20221027
  Serious: No
  Sender: FDA-Public Use
  Company Number: US-ARIS GLOBAL-202111-2061

PATIENT
  Sex: Female

DRUGS (23)
  1. OXERVATE [Suspect]
     Active Substance: CENEGERMIN-BKBJ
     Indication: Neurotrophic keratopathy
     Route: 047
     Dates: start: 20211105
  2. ACETAMINOPHEN\HYDROCODONE [Concomitant]
     Active Substance: ACETAMINOPHEN\HYDROCODONE
  3. SULFASALAZINE [Concomitant]
     Active Substance: SULFASALAZINE
  4. VITAMIN E [Concomitant]
     Active Substance: .ALPHA.-TOCOPHEROL
     Dosage: 1000 UNIT
  5. PREDNISONE [Concomitant]
     Active Substance: PREDNISONE
  6. PROLIA [Concomitant]
     Active Substance: DENOSUMAB
     Dosage: SYRINGE
  7. PANTOPRAZOLE SODIUM [Concomitant]
     Active Substance: PANTOPRAZOLE SODIUM
  8. DOCUSATE SODIUM [Concomitant]
     Active Substance: DOCUSATE SODIUM
  9. SENNA-S [Concomitant]
     Active Substance: DOCUSATE SODIUM\SENNOSIDES
     Dosage: 8.6 MG-50 MG
  10. FLUOXETINE HYDROCHLORIDE [Concomitant]
     Active Substance: FLUOXETINE HYDROCHLORIDE
  11. KLOR-CON [Concomitant]
     Active Substance: POTASSIUM CHLORIDE
     Dosage: SA
  12. HERBALS\TURMERIC [Concomitant]
     Active Substance: HERBALS\TURMERIC
  13. LUTEIN [Concomitant]
     Active Substance: LUTEIN
  14. TORSEMIDE [Concomitant]
     Active Substance: TORSEMIDE
  15. FERROUS SULFATE [Concomitant]
     Active Substance: FERROUS SULFATE
  16. LUBRICATING EYE [Concomitant]
     Active Substance: MINERAL OIL\PETROLATUM
     Dosage: 0,3%-0,4%
  17. VITAMIN C [Concomitant]
     Active Substance: ASCORBIC ACID
  18. LIPITOR [Concomitant]
     Active Substance: ATORVASTATIN CALCIUM
  19. ELIQUIS [Concomitant]
     Active Substance: APIXABAN
  20. MAGNESIUM OXIDE [Concomitant]
     Active Substance: MAGNESIUM OXIDE
  21. VITAMIN D3 [Concomitant]
     Active Substance: CHOLECALCIFEROL
     Dosage: 10/(400) ML DROPS
  22. KRILL OIL [Concomitant]
     Active Substance: DIETARY SUPPLEMENT\KRILL OIL
     Dosage: 1000-130 MG
  23. DILTIAZEM [Concomitant]
     Active Substance: DILTIAZEM
     Dosage: 12 HR

REACTIONS (3)
  - Eye pain [Unknown]
  - Malaise [Unknown]
  - Incorrect dose administered [Unknown]
